FAERS Safety Report 13682847 (Version 2)
Quarter: 2017Q3

REPORT INFORMATION
  Report Type: Report from Study
  Country: GR (occurrence: GR)
  Receive Date: 20170623
  Receipt Date: 20170705
  Transmission Date: 20171127
  Serious: Yes (Death, Other)
  Sender: FDA-Public Use
  Company Number: GR-PFIZER INC-2017265842

PATIENT
  Age: 13 Year
  Sex: Male

DRUGS (10)
  1. AMIKACIN [Concomitant]
     Active Substance: AMIKACIN
     Indication: BACTERIAL SEPSIS
  2. TIGECYCLINE. [Suspect]
     Active Substance: TIGECYCLINE
     Indication: SERRATIA INFECTION
     Dosage: 2 MG/KG, SINGLE (LOADING DOSE)
     Route: 042
  3. AMPHOTERICIN B, LIPOSOME [Concomitant]
     Active Substance: AMPHOTERICIN B
     Indication: ACINETOBACTER BACTERAEMIA
  4. COTRIMOXAZOLE [Concomitant]
     Active Substance: SULFAMETHOXAZOLE\TRIMETHOPRIM
     Indication: BACTERIAL SEPSIS
     Dosage: UNK
  5. TIGECYCLINE. [Suspect]
     Active Substance: TIGECYCLINE
     Indication: ACINETOBACTER BACTERAEMIA
     Dosage: 1 MG/KG, 2X/DAY (MAINTENANCE DOSE), 50 MG, BID
     Route: 042
  6. AMIKACIN [Concomitant]
     Active Substance: AMIKACIN
     Indication: ACINETOBACTER BACTERAEMIA
  7. COLISTIN [Concomitant]
     Active Substance: COLISTIN
     Indication: BACTERIAL SEPSIS
     Dosage: UNK
  8. AMPHOTERICIN B, LIPOSOME [Concomitant]
     Active Substance: AMPHOTERICIN B
     Indication: BACTERIAL SEPSIS
     Dosage: UNK
  9. COLISTIN [Concomitant]
     Active Substance: COLISTIN
     Indication: ACINETOBACTER BACTERAEMIA
  10. COTRIMOXAZOLE [Concomitant]
     Active Substance: SULFAMETHOXAZOLE\TRIMETHOPRIM
     Indication: ACINETOBACTER BACTERAEMIA

REACTIONS (3)
  - Neutropenic colitis [Unknown]
  - Toxicity to various agents [Unknown]
  - Treatment failure [Fatal]
